FAERS Safety Report 12313687 (Version 3)
Quarter: 2016Q3

REPORT INFORMATION
  Report Type: Spontaneous
  Country: JP (occurrence: JP)
  Receive Date: 20160428
  Receipt Date: 20160727
  Transmission Date: 20161109
  Serious: Yes (Death, Hospitalization, Other)
  Sender: FDA-Public Use
  Company Number: JP-ELI_LILLY_AND_COMPANY-JP201604008205

PATIENT
  Age: 74 Year
  Sex: Male

DRUGS (2)
  1. PACLITAXEL. [Suspect]
     Active Substance: PACLITAXEL
     Indication: GASTRIC CANCER
     Dosage: 110 MG, OTHER
     Route: 042
     Dates: start: 20160405, end: 20160405
  2. CYRAMZA [Suspect]
     Active Substance: RAMUCIRUMAB
     Indication: GASTRIC CANCER
     Dosage: 375 MG, OTHER
     Route: 042
     Dates: start: 20160405, end: 20160405

REACTIONS (9)
  - Febrile neutropenia [Unknown]
  - White blood cell count decreased [Unknown]
  - Septic shock [Fatal]
  - Anaemia [Unknown]
  - Platelet count decreased [Unknown]
  - Diarrhoea [Unknown]
  - Disseminated intravascular coagulation [Unknown]
  - Acute kidney injury [Unknown]
  - Stomatitis [Unknown]

NARRATIVE: CASE EVENT DATE: 20160411
